FAERS Safety Report 15465918 (Version 1)
Quarter: 2018Q4

REPORT INFORMATION
  Report Type: Spontaneous
  Country: US (occurrence: US)
  Receive Date: 20181004
  Receipt Date: 20181004
  Transmission Date: 20190204
  Serious: No
  Sender: FDA-Public Use
  Company Number: US-FOUNDATIONCONSUMERHC-2018-US-012828

PATIENT
  Age: 30 Year
  Sex: Female
  Weight: 58.97 kg

DRUGS (2)
  1. TOPIRIMATE [Concomitant]
     Active Substance: TOPIRAMATE
     Dosage: 50 MG/ DAILY
  2. PLAN B ONE-STEP [Suspect]
     Active Substance: LEVONORGESTREL
     Indication: POST COITAL CONTRACEPTION
     Dosage: 1.5 MG
     Route: 048
     Dates: start: 20180605, end: 20180605

REACTIONS (5)
  - Breast tenderness [Not Recovered/Not Resolved]
  - Nausea [Not Recovered/Not Resolved]
  - Metrorrhagia [Recovered/Resolved]
  - Dyspnoea [Not Recovered/Not Resolved]
  - Dysmenorrhoea [Not Recovered/Not Resolved]

NARRATIVE: CASE EVENT DATE: 20180709
